FAERS Safety Report 14681670 (Version 3)
Quarter: 2018Q2

REPORT INFORMATION
  Report Type: Not Available
  Country: DE (occurrence: DE)
  Receive Date: 20180326
  Receipt Date: 20180531
  Transmission Date: 20180711
  Serious: Yes (Hospitalization, Other)
  Sender: FDA-Public Use
  Company Number: DE-SYNTHON BV-NL01PV18_46798

PATIENT
  Age: 79 Year
  Sex: Male

DRUGS (3)
  1. TAMSULOSIN- ABZ [Suspect]
     Active Substance: TAMSULOSIN
     Indication: PROSTATIC DISORDER
     Dosage: 1 DF, DAILY
     Route: 048
     Dates: end: 2018
  2. COUMADIN [Suspect]
     Active Substance: WARFARIN SODIUM
     Indication: SURGERY
     Dosage: 1 DF (5 MG), DAILY
     Dates: start: 1993
  3. ATORVASTATIN [Suspect]
     Active Substance: ATORVASTATIN
     Indication: BLOOD CHOLESTEROL INCREASED
     Dosage: 1 DF, DAILY
     Dates: start: 1993

REACTIONS (7)
  - Dyspnoea [Unknown]
  - Blood pressure increased [Recovering/Resolving]
  - Nocturia [Recovered/Resolved]
  - Dizziness [Unknown]
  - Heart rate increased [Recovered/Resolved]
  - Dehydration [Unknown]
  - Emergency care [Unknown]
